FAERS Safety Report 13575887 (Version 1)
Quarter: 2017Q2

REPORT INFORMATION
  Report Type: Spontaneous
  Country: US (occurrence: US)
  Receive Date: 20170523
  Receipt Date: 20170523
  Transmission Date: 20170830
  Serious: No
  Sender: FDA-Public Use
  Company Number: None

PATIENT
  Age: 36 Year
  Sex: Female
  Weight: 79.65 kg

DRUGS (2)
  1. TOPIRAMATE TABS 200 MG [Suspect]
     Active Substance: TOPIRAMATE
     Indication: MIGRAINE
     Dosage: ?          QUANTITY:1 TABLET(S);?
     Route: 048
     Dates: start: 20170515
  2. DAILY WOMEN^S VITAMIN [Concomitant]

REACTIONS (3)
  - Product quality issue [None]
  - Headache [None]
  - Withdrawal syndrome [None]

NARRATIVE: CASE EVENT DATE: 20170515
